FAERS Safety Report 24229757 (Version 1)
Quarter: 2024Q3

REPORT INFORMATION
  Report Type: Spontaneous
  Country: CN (occurrence: CN)
  Receive Date: 20240820
  Receipt Date: 20240820
  Transmission Date: 20241017
  Serious: Yes (Hospitalization, Other)
  Sender: ELI LILLY AND CO
  Company Number: CN-ELI_LILLY_AND_COMPANY-CN202408009899

PATIENT
  Sex: Female

DRUGS (2)
  1. HUMALOG MIX50/50 [Suspect]
     Active Substance: INSULIN LISPRO
     Indication: Diabetes mellitus
     Dosage: UNK, BID
     Route: 058
  2. HUMALOG MIX50/50 [Suspect]
     Active Substance: INSULIN LISPRO
     Dosage: UNK, TID
     Route: 058

REACTIONS (12)
  - Cerebral thrombosis [Unknown]
  - Cerebral infarction [Unknown]
  - Nephropathy [Unknown]
  - Macular degeneration [Unknown]
  - Arteriosclerosis [Unknown]
  - Cataract [Unknown]
  - Coronary artery disease [Unknown]
  - Hypertension [Unknown]
  - General physical health deterioration [Unknown]
  - Herpes virus infection [Unknown]
  - Memory impairment [Unknown]
  - Hypoglycaemia [Unknown]
